FAERS Safety Report 25995859 (Version 1)
Quarter: 2025Q4

REPORT INFORMATION
  Report Type: Spontaneous
  Country: US (occurrence: None)
  Receive Date: 20251104
  Receipt Date: 20251104
  Transmission Date: 20260117
  Serious: Yes (Hospitalization)
  Sender: FDA-CTU
  Company Number: None

PATIENT
  Age: 62 Year
  Sex: Female

DRUGS (1)
  1. MULTIHANCE [Suspect]
     Active Substance: GADOBENATE DIMEGLUMINE
     Indication: Magnetic resonance imaging
     Dosage: OTHER FREQUENCY : ONCE;?
     Route: 042
     Dates: start: 20251031, end: 20251031

REACTIONS (2)
  - Contrast media reaction [None]
  - Contrast media allergy [None]

NARRATIVE: CASE EVENT DATE: 20251031
